FAERS Safety Report 8518540-2 (Version None)
Quarter: 2012Q3

REPORT INFORMATION
  Report Type: 
  Country: None (occurrence: None)
  Receive Date: 20120718
  Receipt Date: 20120503
  Transmission Date: 20120928
  Serious: No
  Sender: FDA-Public Use
  Company Number: US-BRISTOL-MYERS SQUIBB COMPANY-16570657

PATIENT
  Age: 70 Year
  Sex: Male
  Weight: 79 kg

DRUGS (3)
  1. NEXIUM [Suspect]
  2. COUMADIN [Suspect]
     Indication: ATRIAL FIBRILLATION
  3. WARFARIN SODIUM [Suspect]

REACTIONS (6)
  - GASTROOESOPHAGEAL REFLUX DISEASE [None]
  - ALOPECIA [None]
  - ABDOMINAL PAIN [None]
  - INTERNATIONAL NORMALISED RATIO FLUCTUATION [None]
  - BACK PAIN [None]
  - DYSPHAGIA [None]
